FAERS Safety Report 8018200-0 (Version None)
Quarter: 2012Q1

REPORT INFORMATION
  Report Type: 
  Country: None (occurrence: None)
  Receive Date: 20120103
  Receipt Date: 20111219
  Transmission Date: 20120608
  Serious: Yes (Death)
  Sender: FDA-Public Use
  Company Number: US-PFIZER INC-2011311507

PATIENT
  Age: 29 Year
  Sex: Female

DRUGS (5)
  1. ALPRAZOLAM [Suspect]
     Dosage: UNK
     Route: 048
  2. QUETIAPINE [Suspect]
     Dosage: UNK
     Route: 048
  3. DESVENLAFAXINE [Suspect]
     Dosage: UNK
     Route: 048
  4. ACETAMINOPHEN AND HYDROCODONE BITARTRATE [Suspect]
     Dosage: UNK
     Route: 048
  5. VALPROIC ACID [Suspect]
     Dosage: UNK
     Route: 048

REACTIONS (1)
  - COMPLETED SUICIDE [None]
